FAERS Safety Report 4374102-2 (Version None)
Quarter: 2004Q2

REPORT INFORMATION
  Report Type: 
  Country: None (occurrence: None)
  Receive Date: 20040607
  Receipt Date: 20040528
  Transmission Date: 20050107
  Serious: Yes (Other)
  Sender: FDA-Public Use
  Company Number: FR-ROCHE-369276

PATIENT
  Age: 60 Year
  Sex: Male

DRUGS (1)
  1. ROVALCYTE [Suspect]
     Route: 065
     Dates: end: 20040414

REACTIONS (1)
  - MACULAR OEDEMA [None]
